FAERS Safety Report 11766582 (Version 1)
Quarter: 2015Q4

REPORT INFORMATION
  Report Type: Spontaneous
  Country: US (occurrence: US)
  Receive Date: 20151123
  Receipt Date: 20151123
  Transmission Date: 20160304
  Serious: Yes (Other)
  Sender: FDA-Public Use
  Company Number: US-BEH-2015055835

PATIENT
  Sex: Female
  Weight: 82 kg

DRUGS (21)
  1. DIPHENHYDRAMINE. [Concomitant]
     Active Substance: DIPHENHYDRAMINE
  2. LIDOCAINE. [Concomitant]
     Active Substance: LIDOCAINE
  3. PREMARIN [Concomitant]
     Active Substance: ESTROGENS, CONJUGATED
  4. HIZENTRA [Suspect]
     Active Substance: HUMAN IMMUNOGLOBULIN G
     Indication: IMMUNODEFICIENCY COMMON VARIABLE
     Route: 058
     Dates: start: 20151023
  5. ACETAMINOPHEN. [Concomitant]
     Active Substance: ACETAMINOPHEN
  6. METFORMIN [Concomitant]
     Active Substance: METFORMIN HYDROCHLORIDE
  7. VENTOLIN HFA [Concomitant]
     Active Substance: ALBUTEROL SULFATE
  8. OMEPRAZOLE. [Concomitant]
     Active Substance: OMEPRAZOLE
  9. OXYCONTIN [Concomitant]
     Active Substance: OXYCODONE HYDROCHLORIDE
  10. EPIPEN [Concomitant]
     Active Substance: EPINEPHRINE
  11. CARVEDILOL. [Concomitant]
     Active Substance: CARVEDILOL
  12. CARISOPRODOL. [Concomitant]
     Active Substance: CARISOPRODOL
  13. GABAPENTIN. [Concomitant]
     Active Substance: GABAPENTIN
  14. LISINOPRIL. [Concomitant]
     Active Substance: LISINOPRIL
  15. SYMBICORT [Concomitant]
     Active Substance: BUDESONIDE\FORMOTEROL FUMARATE DIHYDRATE
  16. POTASSIUM CHLORIDE. [Concomitant]
     Active Substance: POTASSIUM CHLORIDE
  17. REQUIP [Concomitant]
     Active Substance: ROPINIROLE HYDROCHLORIDE
  18. ZOLPIDEM [Concomitant]
     Active Substance: ZOLPIDEM\ZOLPIDEM TARTRATE
  19. SIMVASTATIN. [Concomitant]
     Active Substance: SIMVASTATIN
  20. FUROSEMIDE. [Concomitant]
     Active Substance: FUROSEMIDE
  21. LYRICA [Concomitant]
     Active Substance: PREGABALIN

REACTIONS (2)
  - Pneumonia [Unknown]
  - Infusion site haemorrhage [Unknown]
